FAERS Safety Report 7715827-8 (Version None)
Quarter: 2011Q3

REPORT INFORMATION
  Report Type: 
  Country: None (occurrence: None)
  Receive Date: 20110829
  Receipt Date: 20110829
  Transmission Date: 20111222
  Serious: Yes (Other)
  Sender: FDA-Public Use
  Company Number: None

PATIENT
  Sex: Male
  Weight: 53.07 kg

DRUGS (1)
  1. CELEXA [Suspect]

REACTIONS (3)
  - PSYCHOTIC DISORDER [None]
  - CARDIAC DISORDER [None]
  - DYSLEXIA [None]
